FAERS Safety Report 21929250 (Version 3)
Quarter: 2023Q1

REPORT INFORMATION
  Report Type: Spontaneous
  Country: US (occurrence: US)
  Receive Date: 20230131
  Receipt Date: 20230330
  Transmission Date: 20230417
  Serious: No
  Sender: FDA-Public Use
  Company Number: US-SA-SAC20230125001750

PATIENT
  Age: 18 Year
  Sex: Male

DRUGS (3)
  1. DUPIXENT [Suspect]
     Active Substance: DUPILUMAB
     Indication: Dermatitis atopic
     Dosage: 300 MG, OTHER
     Route: 058
     Dates: start: 20220805, end: 20230317
  2. DESONIDE [Concomitant]
     Active Substance: DESONIDE
     Indication: Eczema
     Dosage: UNK UNK, PRN
     Route: 061
     Dates: start: 20220807
  3. TACROLIMUS [Concomitant]
     Active Substance: TACROLIMUS
     Dosage: UNK, BID
     Route: 061
     Dates: start: 20220807

REACTIONS (6)
  - Dry skin [Unknown]
  - Dermatitis psoriasiform [Recovered/Resolved]
  - Dermatitis atopic [Unknown]
  - Pruritus [Unknown]
  - Skin exfoliation [Unknown]
  - Rash [Recovered/Resolved]

NARRATIVE: CASE EVENT DATE: 20230228
